FAERS Safety Report 24339183 (Version 1)
Quarter: 2024Q3

REPORT INFORMATION
  Report Type: Spontaneous
  Country: US (occurrence: None)
  Receive Date: 20240918
  Receipt Date: 20240918
  Transmission Date: 20241017
  Serious: Yes (Life-Threatening, Hospitalization, Disabling)
  Sender: Public
  Company Number: None

PATIENT
  Age: 22 Year
  Sex: Male
  Weight: 90 kg

DRUGS (9)
  1. FINASTERIDE [Suspect]
     Active Substance: FINASTERIDE
     Indication: Alopecia
     Route: 048
  2. MINOXIDIL [Suspect]
     Active Substance: MINOXIDIL
     Indication: Alopecia
     Route: 048
  3. OLANZAPINE [Concomitant]
     Active Substance: OLANZAPINE
  4. MAGNESIUM [Concomitant]
     Active Substance: MAGNESIUM
  5. ZINC [Concomitant]
     Active Substance: ZINC
  6. MSM (methylsulfonylmethane) [Concomitant]
  7. FISH OIL [Concomitant]
     Active Substance: FISH OIL
  8. COENZYME Q10 [Concomitant]
     Active Substance: DIETARY SUPPLEMENT\UBIDECARENONE
  9. Barley Max [Concomitant]

REACTIONS (9)
  - Anxiety [None]
  - Night sweats [None]
  - Disturbance in attention [None]
  - Delusion [None]
  - Hallucination, visual [None]
  - Suicidal ideation [None]
  - Tremor [None]
  - Autism spectrum disorder [None]
  - Psychotic disorder [None]

NARRATIVE: CASE EVENT DATE: 20210915
